FAERS Safety Report 9667976 (Version 1)
Quarter: 2013Q4

REPORT INFORMATION
  Report Type: Spontaneous
  Country: US (occurrence: US)
  Receive Date: 20131104
  Receipt Date: 20131104
  Transmission Date: 20140711
  Serious: Yes (Other)
  Sender: FDA-Public Use
  Company Number: US-GLAXOSMITHKLINE-A1048053A

PATIENT
  Age: 60 Year
  Sex: Male

DRUGS (1)
  1. EPIVIR HBV [Suspect]
     Indication: HEPATITIS B
     Dosage: 100MG UNKNOWN
     Route: 065
     Dates: start: 19890101

REACTIONS (4)
  - Liver transplant [Unknown]
  - Liver injury [Unknown]
  - Depression [Unknown]
  - Impaired work ability [Unknown]
